FAERS Safety Report 14240579 (Version 4)
Quarter: 2017Q4

REPORT INFORMATION
  Report Type: Report from Study
  Country: CA (occurrence: CA)
  Receive Date: 20171130
  Receipt Date: 20171223
  Transmission Date: 20180321
  Serious: Yes (Hospitalization)
  Sender: FDA-Public Use
  Company Number: CA-HLSUS-2017-CA-001198

PATIENT
  Age: 70 Year
  Sex: Female

DRUGS (13)
  1. TRAZODONE [Concomitant]
     Active Substance: TRAZODONE HYDROCHLORIDE
     Dosage: 100MG ONCE DAILY
  2. PREGABALIN. [Concomitant]
     Active Substance: PREGABALIN
     Dosage: 75MG TWICE DAILY
  3. CLOZARIL [Suspect]
     Active Substance: CLOZAPINE
     Dosage: 150 MG DAILY
     Route: 048
     Dates: start: 20101004, end: 20171118
  4. JAMP-SENOSIDES [Concomitant]
     Dosage: 1-2 TABLETS TWICE DAILY
  5. CALCIUM [Concomitant]
     Active Substance: CALCIUM
     Dosage: 500MG DAILY
  6. STATEX [Concomitant]
     Active Substance: MORPHINE SULFATE
     Dosage: 5MG THREE TIMES A DAY FOR 3 WEEKS.
  7. JAMP -VIT B12 [Concomitant]
     Dosage: 1200MG TWICE A WEEK
  8. TARO-DUCOSATE [Concomitant]
     Indication: CONSTIPATION
     Dosage: 100MG (1-2 CAPSULES TWICE PER DAY)
  9. AMLODIPINE [Concomitant]
     Active Substance: AMLODIPINE BESYLATE
     Dosage: 5MG ONCE DAILY
  10. MULTIVITAMINS [Concomitant]
     Active Substance: VITAMINS
     Dosage: 1 TABLET/DAY
  11. JAMP-QUETIAPINE [Concomitant]
     Dosage: 50MG AT SUPER
  12. SYNTHROID [Concomitant]
     Active Substance: LEVOTHYROXINE SODIUM
     Dosage: 0.1MG ONCE DAILY
  13. JAMP-PANTOPRAZOLE [Concomitant]
     Dosage: 40MG ONCE DAILY

REACTIONS (3)
  - Joint swelling [Recovering/Resolving]
  - Neutropenia [Unknown]
  - White blood cell count decreased [Recovered/Resolved]

NARRATIVE: CASE EVENT DATE: 20171117
